FAERS Safety Report 5476782-7 (Version None)
Quarter: 2007Q4

REPORT INFORMATION
  Report Type: 
  Country: None (occurrence: None)
  Receive Date: 20071003
  Receipt Date: 20071003
  Transmission Date: 20080405
  Serious: Yes (Other)
  Sender: FDA-Public Use
  Company Number: None

PATIENT
  Age: 29 Year
  Sex: Female
  Weight: 68.0396 kg

DRUGS (1)
  1. ZOLOFT [Suspect]
     Dosage: 100 MG DAILY  Q DAY PO
     Route: 048

REACTIONS (4)
  - ANXIETY [None]
  - PANIC DISORDER [None]
  - SUICIDAL IDEATION [None]
  - THERAPEUTIC RESPONSE UNEXPECTED WITH DRUG SUBSTITUTION [None]
